FAERS Safety Report 4705087-4 (Version None)
Quarter: 2005Q2

REPORT INFORMATION
  Report Type: 
  Country: None (occurrence: None)
  Receive Date: 20050629
  Receipt Date: 20050620
  Transmission Date: 20051028
  Serious: Yes (Other)
  Sender: FDA-Public Use
  Company Number: 2005091333

PATIENT
  Sex: Female

DRUGS (1)
  1. XALATAN [Suspect]
     Indication: ILL-DEFINED DISORDER
     Dosage: OPHTHALMIC
     Route: 047

REACTIONS (8)
  - CATARACT [None]
  - DRUG ADMINISTRATION ERROR [None]
  - DRY EYE [None]
  - EYE DISORDER [None]
  - EYELID INFECTION [None]
  - INCORRECT DOSE ADMINISTERED [None]
  - POST PROCEDURAL COMPLICATION [None]
  - UNEVALUABLE EVENT [None]
